FAERS Safety Report 4404335-8 (Version None)
Quarter: 2004Q3

REPORT INFORMATION
  Report Type: 
  Country: None (occurrence: None)
  Receive Date: 20040721
  Receipt Date: 20040721
  Transmission Date: 20050211
  Serious: Yes (Hospitalization)
  Sender: FDA-Public Use
  Company Number: None

PATIENT
  Age: 59 Year
  Sex: Male

DRUGS (7)
  1. IRBESARTAN [Suspect]
     Indication: HYPERTENSION
     Dosage: 75 MG QD
  2. FELODIPINE [Concomitant]
  3. LASIX [Concomitant]
  4. LORATADINE [Concomitant]
  5. GLYBURIDE [Concomitant]
  6. METOPROLOL [Concomitant]
  7. SIMVASTATIN [Concomitant]

REACTIONS (2)
  - HYPERKALAEMIA [None]
  - RENAL FAILURE [None]
